FAERS Safety Report 8799009 (Version 1)
Quarter: 2012Q4

REPORT INFORMATION
  Report Type: 
  Country: IT (occurrence: IT)
  Receive Date: 20120920
  Receipt Date: 20120920
  Transmission Date: 20130627
  Serious: Yes (Hospitalization)
  Sender: FDA-Public Use
  Company Number: PHHY2012IT079899

PATIENT
  Age: 11 Month
  Sex: Female

DRUGS (1)
  1. CYANOCOBALAMIN [Suspect]
     Dosage: 1000 ug, QD
     Route: 030

REACTIONS (8)
  - Encephalopathy [Recovered/Resolved]
  - Cerebral atrophy [Recovering/Resolving]
  - Dyskinesia [Recovered/Resolved]
  - Tremor [Recovered/Resolved]
  - Myoclonus [Recovered/Resolved]
  - Protrusion tongue [Recovered/Resolved]
  - Lethargy [Recovered/Resolved]
  - Decreased activity [Recovered/Resolved]
